FAERS Safety Report 9892713 (Version 1)
Quarter: 2014Q1

REPORT INFORMATION
  Report Type: Spontaneous
  Country: US (occurrence: US)
  Receive Date: 20140212
  Receipt Date: 20140212
  Transmission Date: 20141002
  Serious: Yes (Hospitalization)
  Sender: FDA-Public Use
  Company Number: US-AMGEN-USASP2014009417

PATIENT
  Age: 55 Year
  Sex: Male

DRUGS (6)
  1. NEULASTA [Suspect]
     Indication: PRODUCT USED FOR UNKNOWN INDICATION
     Dosage: UNK
     Route: 065
  2. RITUXIMAB [Concomitant]
     Indication: T-CELL LYMPHOMA
     Dosage: UNK
  3. CYCLOPHOSPHAMIDE [Concomitant]
     Indication: T-CELL LYMPHOMA
     Dosage: UNK
  4. DOXORUBICIN [Concomitant]
     Indication: T-CELL LYMPHOMA
     Dosage: UNK
  5. ONCOVIN [Concomitant]
     Indication: T-CELL LYMPHOMA
     Dosage: UNK
  6. PREDNISOLONE [Concomitant]
     Indication: T-CELL LYMPHOMA
     Dosage: UNK

REACTIONS (4)
  - Clostridium difficile infection [Unknown]
  - Immunodeficiency [Unknown]
  - Rash [Unknown]
  - Acute febrile neutrophilic dermatosis [Unknown]
